FAERS Safety Report 23254256 (Version 1)
Quarter: 2023Q4

REPORT INFORMATION
  Report Type: Spontaneous
  Country: CA (occurrence: CA)
  Receive Date: 20231202
  Receipt Date: 20231202
  Transmission Date: 20240110
  Serious: Yes (Hospitalization)
  Sender: FDA-Public Use
  Company Number: None

PATIENT
  Sex: Male

DRUGS (3)
  1. CIPRALEX [Suspect]
     Active Substance: ESCITALOPRAM OXALATE
     Indication: Product used for unknown indication
     Route: 065
  2. CYMBALTA [Interacting]
     Active Substance: DULOXETINE HYDROCHLORIDE
     Indication: Post-traumatic stress disorder
     Route: 065
     Dates: start: 201002
  3. CLONAZEPAM [Concomitant]
     Active Substance: CLONAZEPAM
     Indication: Product used for unknown indication
     Route: 065

REACTIONS (6)
  - Bipolar disorder [Recovering/Resolving]
  - Brain injury [Recovering/Resolving]
  - Withdrawal syndrome [Recovering/Resolving]
  - Hallucination [Recovering/Resolving]
  - Drug interaction [Unknown]
  - Behaviour disorder [Recovered/Resolved]

NARRATIVE: CASE EVENT DATE: 20100101
